FAERS Safety Report 6596154-1 (Version None)
Quarter: 2010Q1

REPORT INFORMATION
  Report Type: 
  Country: None (occurrence: None)
  Receive Date: 20100216
  Receipt Date: 20100205
  Transmission Date: 20100710
  Serious: Yes (Hospitalization)
  Sender: FDA-Public Use
  Company Number: 20108151

PATIENT
  Sex: Female
  Weight: 2.21 kg

DRUGS (1)
  1. LIORESAL [Suspect]
     Indication: MUSCLE SPASTICITY
     Dosage: DAILY, TRANSPLACENTAL
     Route: 064

REACTIONS (6)
  - JAUNDICE NEONATAL [None]
  - MATERNAL DRUGS AFFECTING FOETUS [None]
  - NEONATAL HYPOXIA [None]
  - NEONATAL TACHYPNOEA [None]
  - PREMATURE BABY [None]
  - UMBILICAL CORD AROUND NECK [None]
